FAERS Safety Report 8512436-8 (Version None)
Quarter: 2012Q3

REPORT INFORMATION
  Report Type: 
  Country: None (occurrence: None)
  Receive Date: 20120716
  Receipt Date: 20120703
  Transmission Date: 20120928
  Serious: Yes (Other)
  Sender: FDA-Public Use
  Company Number: FR-SANOFI-AVENTIS-2012SA019907

PATIENT
  Age: 64 Year
  Sex: Female
  Weight: 54 kg

DRUGS (2)
  1. TAXOTERE [Suspect]
     Indication: BRONCHIAL CARCINOMA
     Dosage: DOSE: 4 CYCLES AT 120 MG EVERY 3 WEEKS
     Route: 065
     Dates: start: 20110328, end: 20110603
  2. CARBOPLATIN [Suspect]
     Indication: BRONCHIAL CARCINOMA
     Route: 065
     Dates: end: 20110601

REACTIONS (5)
  - NEUTROPENIA [None]
  - MUSCLE ATROPHY [None]
  - THROMBOCYTOPENIA [None]
  - POLYARTHRITIS [None]
  - PARAESTHESIA [None]
